FAERS Safety Report 25631414 (Version 1)
Quarter: 2025Q3

REPORT INFORMATION
  Report Type: Spontaneous
  Country: EU (occurrence: EU)
  Receive Date: 20250801
  Receipt Date: 20250801
  Transmission Date: 20251021
  Serious: Yes (Other)
  Sender: HIKMA
  Company Number: None

PATIENT
  Age: 91 Year
  Sex: Male
  Weight: 72 kg

DRUGS (3)
  1. ACYCLOVIR [Suspect]
     Active Substance: ACYCLOVIR
     Indication: Meningitis bacterial
     Dosage: 70 MILLIGRAM, Q12H
     Route: 065
     Dates: start: 20250302, end: 20250307
  2. AMOXICILLIN [Suspect]
     Active Substance: AMOXICILLIN
     Indication: Meningitis bacterial
     Dosage: 3.5 GRAM, Q6H
     Route: 048
     Dates: start: 20250302, end: 20250307
  3. CEFOTAXIME [Suspect]
     Active Substance: CEFOTAXIME SODIUM
     Indication: Meningitis bacterial
     Dosage: 7 GRAM, Q8H
     Route: 048
     Dates: start: 20250302, end: 20250307

REACTIONS (1)
  - Acute generalised exanthematous pustulosis [Recovering/Resolving]

NARRATIVE: CASE EVENT DATE: 20250303
